FAERS Safety Report 8127042-7 (Version None)
Quarter: 2011Q4

REPORT INFORMATION
  Report Type: 
  Country: None (occurrence: None)
  Receive Date: 20111227
  Receipt Date: 20110920
  Transmission Date: 20120403
  Serious: No
  Sender: FDA-Public Use
  Company Number: PHEH2011US02842

PATIENT
  Age: 34 Year
  Sex: Female

DRUGS (8)
  1. ESTRADIOL [Concomitant]
  2. ELETRIPTAN HYDROBROMIDE (ELETRIPTAN HYDROBROMIDE) [Concomitant]
  3. CALCIUM CARBONATE [Concomitant]
  4. FLUOXETINE [Concomitant]
  5. PROZAC [Concomitant]
  6. GILENYA [Suspect]
     Indication: MULTIPLE SCLEROSIS
     Dosage: 0.5 MG, DAILY, ORAL
     Route: 048
     Dates: start: 20110602, end: 20110831
  7. AMBIEN [Concomitant]
  8. MULTIVITAMINS (ASCORBIC ACID, ERGOCALCIFEROL, FOLIC ACID, NICOTINAMIDE [Concomitant]

REACTIONS (2)
  - VISION BLURRED [None]
  - PUPILLARY DISORDER [None]
